FAERS Safety Report 5372159-3 (Version None)
Quarter: 2007Q2

REPORT INFORMATION
  Report Type: 
  Country: None (occurrence: None)
  Receive Date: 20070627
  Receipt Date: 20070615
  Transmission Date: 20071010
  Serious: Yes (Hospitalization, Disabling, Other)
  Sender: FDA-Public Use
  Company Number: US-ROCHE-473385

PATIENT
  Age: 28 Year
  Sex: Female
  Weight: 50.8 kg

DRUGS (2)
  1. ACCUTANE [Suspect]
     Dosage: THERAPY IN THE MID TO LATE 1980'S.
     Route: 048
  2. BIRTH CONTROL PILLS [Concomitant]

REACTIONS (24)
  - ABDOMINAL PAIN [None]
  - ANAEMIA [None]
  - ANXIETY [None]
  - ARTHRALGIA [None]
  - ARTHRITIS [None]
  - BACK PAIN [None]
  - CALCULUS URETERIC [None]
  - CATATONIA [None]
  - CONSTIPATION [None]
  - CROHN'S DISEASE [None]
  - DEPRESSION [None]
  - DIARRHOEA [None]
  - FATIGUE [None]
  - ILEITIS [None]
  - INFLAMMATORY BOWEL DISEASE [None]
  - INSOMNIA [None]
  - INTESTINAL HAEMORRHAGE [None]
  - INTESTINAL OBSTRUCTION [None]
  - MALNUTRITION [None]
  - NECK PAIN [None]
  - NEPHROLITHIASIS [None]
  - RECTAL HAEMORRHAGE [None]
  - SMALL INTESTINAL OBSTRUCTION [None]
  - WEIGHT DECREASED [None]
